FAERS Safety Report 11862876 (Version 3)
Quarter: 2016Q1

REPORT INFORMATION
  Report Type: Spontaneous
  Country: US (occurrence: US)
  Receive Date: 20151223
  Receipt Date: 20160112
  Transmission Date: 20160526
  Serious: Yes (Disabling, Other)
  Sender: FDA-Public Use
  Company Number: US-ROCHE-1682666

PATIENT
  Age: 84 Year
  Sex: Male

DRUGS (14)
  1. ADVAIR HFA [Concomitant]
     Active Substance: FLUTICASONE PROPIONATE\SALMETEROL XINAFOATE
     Dosage: 2 PUFFS
     Route: 065
  2. BABY ASPIRIN [Concomitant]
     Active Substance: ASPIRIN
  3. CEFTAZIDIME. [Concomitant]
     Active Substance: CEFTAZIDIME
     Route: 050
     Dates: start: 20151015, end: 20151022
  4. LIPITOR [Concomitant]
     Active Substance: ATORVASTATIN CALCIUM
     Route: 065
  5. LOSARTAN. [Concomitant]
     Active Substance: LOSARTAN
     Route: 065
  6. FUROSEMIDE. [Concomitant]
     Active Substance: FUROSEMIDE
     Route: 065
  7. LUMIGAN [Concomitant]
     Active Substance: BIMATOPROST
     Indication: GLAUCOMA
     Route: 065
  8. LUCENTIS [Suspect]
     Active Substance: RANIBIZUMAB
     Indication: NEOVASCULAR AGE-RELATED MACULAR DEGENERATION
     Dosage: ONCE IN 4-6 WEEKS
     Route: 050
     Dates: start: 2009, end: 20151015
  9. VITAMIN B12 [Concomitant]
     Active Substance: CYANOCOBALAMIN
     Route: 065
  10. OMEPRAZOLE. [Concomitant]
     Active Substance: OMEPRAZOLE
     Route: 065
  11. ATENOLOL. [Concomitant]
     Active Substance: ATENOLOL
     Route: 065
  12. ZETIA [Concomitant]
     Active Substance: EZETIMIBE
     Route: 065
  13. PROAIR HFA [Concomitant]
     Active Substance: ALBUTEROL SULFATE
     Indication: CHRONIC OBSTRUCTIVE PULMONARY DISEASE
     Route: 065
  14. VANCO [Concomitant]
     Active Substance: VANCOMYCIN
     Route: 050
     Dates: start: 20151015, end: 20151022

REACTIONS (7)
  - Infection [Unknown]
  - Pain [Unknown]
  - Fatigue [Unknown]
  - Blindness [Unknown]
  - Macular detachment [Unknown]
  - Endophthalmitis [Recovered/Resolved with Sequelae]
  - Retinal detachment [Recovered/Resolved]

NARRATIVE: CASE EVENT DATE: 20151015
